FAERS Safety Report 8078010-5 (Version None)
Quarter: 2012Q1

REPORT INFORMATION
  Report Type: 
  Country: None (occurrence: None)
  Receive Date: 20120127
  Receipt Date: 20110112
  Transmission Date: 20120608
  Serious: No
  Sender: FDA-Public Use
  Company Number: US-ABBOTT-10P-163-0682767-00

PATIENT
  Age: 69 Year
  Sex: Female

DRUGS (6)
  1. HUMIRA [Suspect]
     Indication: RHEUMATOID ARTHRITIS
     Dates: start: 20100727, end: 20101101
  2. NORVASC [Concomitant]
     Indication: BLOOD PRESSURE
  3. HYDROCODONE [Concomitant]
     Indication: RHEUMATOID ARTHRITIS
     Route: 048
     Dates: start: 20101201
  4. AVAPRO [Concomitant]
     Indication: BLOOD PRESSURE
  5. PREDNISONE [Concomitant]
     Indication: RHEUMATOID ARTHRITIS
     Dates: start: 20100727
  6. PREDNISONE [Concomitant]
     Dates: start: 20101101, end: 20101201

REACTIONS (7)
  - FEELING ABNORMAL [None]
  - ARTHRALGIA [None]
  - JOINT SWELLING [None]
  - ABASIA [None]
  - RASH [None]
  - OEDEMA PERIPHERAL [None]
  - HEADACHE [None]
